FAERS Safety Report 5335713-0 (Version None)
Quarter: 2007Q2

REPORT INFORMATION
  Report Type: 
  Country: None (occurrence: None)
  Receive Date: 20070322
  Receipt Date: 20070119
  Transmission Date: 20071010
  Serious: No
  Sender: FDA-Public Use
  Company Number: 2007US000194

PATIENT
  Age: 66 Year
  Sex: Female

DRUGS (9)
  1. VESICARE [Suspect]
     Indication: POLLAKIURIA
     Dosage: 5 MG, UID/QD, ORAL
     Route: 048
  2. CARBAMAZEPINE [Concomitant]
  3. CITALOPRAM (CITALOPRAM HYDROCHLORIDE) [Concomitant]
  4. LOVASTATIN [Concomitant]
  5. ENALAPRIL MALEATE [Concomitant]
  6. INSULIN (INSULIN HUMAN) [Concomitant]
  7. NPH INSULIN (INSULIN INJECTION, ISOPHANE) [Concomitant]
  8. MULTIVITAMIN [Concomitant]
  9. XANAX [Concomitant]

REACTIONS (1)
  - DRUG INEFFECTIVE [None]
